FAERS Safety Report 11267409 (Version 1)
Quarter: 2015Q3

REPORT INFORMATION
  Report Type: Other
  Country: GB (occurrence: GB)
  Receive Date: 20150713
  Receipt Date: 20150713
  Transmission Date: 20151125
  Serious: Yes (Other)
  Sender: FDA-Public Use
  Company Number: GB-MYLANLABS-2015M1022115

PATIENT

DRUGS (7)
  1. OMEPRAZOLE. [Suspect]
     Active Substance: OMEPRAZOLE
     Indication: PROPHYLAXIS AGAINST GASTROINTESTINAL ULCER
     Dosage: UNK
  2. SENNA [Concomitant]
     Active Substance: SENNA LEAF\SENNOSIDES\SENNOSIDES A AND B
     Dosage: UNK
  3. INTAL [Concomitant]
     Active Substance: CROMOLYN SODIUM
     Dosage: UNK
  4. FUROSEMIDE. [Concomitant]
     Active Substance: FUROSEMIDE
     Indication: SWELLING
     Dosage: 10 MG, UNK
  5. MAGNESIUM [Concomitant]
     Active Substance: MAGNESIUM
     Dosage: STOPPED
  6. ANTIHISTAMINES [Concomitant]
     Active Substance: ANTIHISTAMINES NOS
     Dosage: UNK
  7. INHALERIN [Concomitant]
     Dosage: UNK
     Route: 055

REACTIONS (2)
  - Pain [Unknown]
  - Erythema [Unknown]
